FAERS Safety Report 24444338 (Version 1)
Quarter: 2024Q4

REPORT INFORMATION
  Report Type: Spontaneous
  Country: GB (occurrence: GB)
  Receive Date: 20241016
  Receipt Date: 20241016
  Transmission Date: 20250114
  Serious: Yes (Other)
  Sender: RANBAXY
  Company Number: GB-MHRA-TPP22124911C23261475YC1727691912828

PATIENT
  Age: 74 Year
  Sex: Female
  Weight: 101 kg

DRUGS (5)
  1. CODEINE [Suspect]
     Active Substance: CODEINE
     Indication: Product used for unknown indication
     Dosage: 15 MILLIGRAM, UNK
     Route: 065
     Dates: start: 20240919
  2. CLOBETASONE [Concomitant]
     Active Substance: CLOBETASONE
     Indication: Ill-defined disorder
     Dosage: THINLY ONCE DAILY AT NIGHT TO RED AREAS FOR 5-7...
     Route: 065
     Dates: start: 20240919, end: 20240920
  3. ZERODERM [Concomitant]
     Indication: Ill-defined disorder
     Dosage: ONCE DAILY IN THE MORNING TO BOTH LEGS
     Route: 065
     Dates: start: 20240919, end: 20240920
  4. AMLODIPINE [Concomitant]
     Active Substance: AMLODIPINE BESYLATE
     Indication: Ill-defined disorder
     Dosage: TAKE ONE DAILY (TOTAL DAILY DOSE 10MG)
     Route: 065
     Dates: start: 20240514
  5. RAMIPRIL [Concomitant]
     Active Substance: RAMIPRIL
     Indication: Ill-defined disorder
     Dosage: TAKE ONE DAILY
     Route: 065
     Dates: start: 20240514

REACTIONS (1)
  - Rash [Recovering/Resolving]
